FAERS Safety Report 10284744 (Version 3)
Quarter: 2014Q3

REPORT INFORMATION
  Report Type: Spontaneous
  Country: FR (occurrence: FR)
  Receive Date: 20140708
  Receipt Date: 20140717
  Transmission Date: 20150326
  Serious: Yes (Death)
  Sender: FDA-Public Use
  Company Number: PHHY2014FR083596

PATIENT
  Age: 71 Year
  Sex: Female

DRUGS (7)
  1. KARDEGIC [Concomitant]
     Active Substance: ASPIRIN LYSINE
     Indication: CARDIAC DISORDER
     Dosage: 75 MG, QD (IN THE EVENING)
     Route: 048
  2. VOLTARENE [Suspect]
     Active Substance: DICLOFENAC SODIUM
     Indication: PAIN
     Dosage: 100 MG, QD
     Route: 048
     Dates: start: 201403, end: 201404
  3. DEROXAT [Concomitant]
     Active Substance: PAROXETINE HYDROCHLORIDE
     Indication: DEPRESSION
     Dosage: 20 MG, QD (IN THE MORNING)
     Route: 048
     Dates: start: 20140407
  4. TEMERIT [Concomitant]
     Active Substance: NEBIVOLOL
     Indication: CARDIAC DISORDER
     Dosage: 5 MG, QD (IN THE MORNING)
     Route: 048
  5. CORVASAL [Concomitant]
     Active Substance: LINSIDOMINE
     Indication: CARDIAC DISORDER
     Dosage: 2 MG, TID
  6. LYSANXIA [Concomitant]
     Active Substance: PRAZEPAM
     Indication: DEPRESSION
     Dosage: 10 MG, QD
     Route: 048
     Dates: start: 20140407
  7. INEGY [Concomitant]
     Active Substance: EZETIMIBE\SIMVASTATIN
     Indication: CARDIAC DISORDER
     Dosage: 10 MG/20 MG, QD (IN THE EVENING)
     Route: 048

REACTIONS (4)
  - Cardiac arrest [Fatal]
  - Cardiogenic shock [Fatal]
  - Coronary artery thrombosis [Fatal]
  - Ventricular fibrillation [Fatal]

NARRATIVE: CASE EVENT DATE: 20140409
